FAERS Safety Report 14406323 (Version 2)
Quarter: 2018Q1

REPORT INFORMATION
  Report Type: Spontaneous
  Country: US (occurrence: US)
  Receive Date: 20180118
  Receipt Date: 20180206
  Transmission Date: 20180509
  Serious: No
  Sender: FDA-Public Use
  Company Number: US-GLAXOSMITHKLINE-US2018GSK008064

PATIENT
  Sex: Female

DRUGS (2)
  1. FLUTICASONE FUROATE INHALATION POWDER [Suspect]
     Active Substance: FLUTICASONE FUROATE
     Indication: ASTHMA
     Dosage: UNK
     Dates: start: 20180106, end: 20180112
  2. ARNUITY ELLIPTA [Suspect]
     Active Substance: FLUTICASONE FUROATE
     Indication: ASTHMA
     Dosage: UNK
     Dates: start: 20180106, end: 20180112

REACTIONS (3)
  - Inappropriate schedule of drug administration [Recovered/Resolved]
  - Drug intolerance [Recovering/Resolving]
  - Dyspnoea [Recovering/Resolving]

NARRATIVE: CASE EVENT DATE: 201801
